FAERS Safety Report 17999281 (Version 1)
Quarter: 2020Q3

REPORT INFORMATION
  Report Type: Spontaneous
  Country: US (occurrence: US)
  Receive Date: 20200708
  Receipt Date: 20200708
  Transmission Date: 20201103
  Serious: Yes (Hospitalization)
  Sender: FDA-Public Use
  Company Number: None

PATIENT
  Age: 66 Year
  Sex: Male

DRUGS (2)
  1. CYCLOPHOSPHAMIDE (CYCLOPHOSPHAMIDE 100MG/VIL INJ) [Suspect]
     Active Substance: CYCLOPHOSPHAMIDE
     Indication: NON-HODGKIN^S LYMPHOMA
     Route: 042
     Dates: start: 20200624, end: 20200624
  2. RITUXIMAB (RITUXIMAB 10MG/ML, VIL, 10ML) [Suspect]
     Active Substance: RITUXIMAB
     Indication: NON-HODGKIN^S LYMPHOMA
     Route: 042
     Dates: start: 20200624, end: 20200624

REACTIONS (7)
  - Constipation [None]
  - Neutropenia [None]
  - Leukopenia [None]
  - Thrombocytopenia [None]
  - Diarrhoea [None]
  - Refusal of treatment by patient [None]
  - Abdominal pain [None]

NARRATIVE: CASE EVENT DATE: 20200704
